FAERS Safety Report 14318150 (Version 2)
Quarter: 2018Q1

REPORT INFORMATION
  Report Type: Spontaneous
  Country: US (occurrence: US)
  Receive Date: 20171222
  Receipt Date: 20180104
  Transmission Date: 20180509
  Serious: Yes (Hospitalization, Other)
  Sender: FDA-Public Use
  Company Number: US-WEST-WARD PHARMACEUTICALS CORP.-US-H14001-17-05021

PATIENT
  Age: 13 Year
  Sex: Female
  Weight: 79.5 kg

DRUGS (20)
  1. FOSPHENYTOIN SODIUM. [Suspect]
     Active Substance: FOSPHENYTOIN SODIUM
     Indication: SEIZURE
     Route: 042
     Dates: end: 20171027
  2. SOLU-MEDROL [Suspect]
     Active Substance: METHYLPREDNISOLONE SODIUM SUCCINATE
     Indication: MIGRAINE
     Route: 042
     Dates: start: 20171026, end: 20171030
  3. MELATONIN [Concomitant]
     Active Substance: MELATONIN
     Indication: INSOMNIA
     Route: 065
  4. RAPAMUNE [Suspect]
     Active Substance: SIROLIMUS
     Indication: STURGE-WEBER SYNDROME
     Route: 048
     Dates: start: 20170504, end: 20171026
  5. DELTASONE [Suspect]
     Active Substance: PREDNISONE
     Indication: MIGRAINE
     Route: 048
     Dates: start: 20171101, end: 20171101
  6. KEPPRA XR [Concomitant]
     Active Substance: LEVETIRACETAM
     Indication: EPILEPSY
     Route: 065
  7. TORADOL [Concomitant]
     Active Substance: KETOROLAC TROMETHAMINE
     Indication: CEREBROVASCULAR ACCIDENT
     Route: 065
     Dates: start: 20171026, end: 20171029
  8. DELTASONE [Suspect]
     Active Substance: PREDNISONE
     Indication: SEIZURE
     Route: 048
     Dates: start: 20171031, end: 20171031
  9. COMPAZINE [Concomitant]
     Active Substance: PROCHLORPERAZINE MALEATE
     Indication: CEREBROVASCULAR ACCIDENT
     Route: 065
     Dates: start: 20171026, end: 20171029
  10. DILANTIN [Suspect]
     Active Substance: PHENYTOIN
     Indication: CEREBROVASCULAR ACCIDENT
     Route: 048
     Dates: start: 20171026, end: 20171106
  11. TOPAMAX [Concomitant]
     Active Substance: TOPIRAMATE
     Indication: EPILEPSY
     Route: 065
  12. SYNTHROID [Concomitant]
     Active Substance: LEVOTHYROXINE SODIUM
     Indication: HYPOTHYROIDISM
     Route: 065
  13. RITALIN LA [Concomitant]
     Active Substance: METHYLPHENIDATE HYDROCHLORIDE
     Indication: ATTENTION DEFICIT/HYPERACTIVITY DISORDER
     Route: 065
  14. DELTASONE [Suspect]
     Active Substance: PREDNISONE
     Route: 048
     Dates: start: 20171103, end: 20171103
  15. ONDANSETRON [Concomitant]
     Active Substance: ONDANSETRON
     Indication: MIGRAINE
     Route: 065
  16. FOSPHENYTOIN SODIUM. [Suspect]
     Active Substance: FOSPHENYTOIN SODIUM
     Route: 042
     Dates: end: 20171027
  17. DELTASONE [Suspect]
     Active Substance: PREDNISONE
     Route: 048
     Dates: start: 20171102, end: 20171102
  18. DELTASONE [Suspect]
     Active Substance: PREDNISONE
     Route: 048
     Dates: start: 20171030, end: 20171030
  19. DELTASONE [Suspect]
     Active Substance: PREDNISONE
     Route: 048
     Dates: start: 20171104, end: 20171104
  20. TRILEPTAL [Concomitant]
     Active Substance: OXCARBAZEPINE
     Indication: EPILEPSY
     Route: 065

REACTIONS (3)
  - Anaemia [Recovered/Resolved]
  - Gastrointestinal haemorrhage [Recovered/Resolved]
  - Gastric ulcer [Recovering/Resolving]

NARRATIVE: CASE EVENT DATE: 20171108
